FAERS Safety Report 4951657-8 (Version None)
Quarter: 2006Q1

REPORT INFORMATION
  Report Type: 
  Country: None (occurrence: None)
  Receive Date: 20060322
  Receipt Date: 20060322
  Transmission Date: 20060701
  Serious: Yes (Hospitalization)
  Sender: FDA-Public Use
  Company Number: None

PATIENT
  Age: 71 Year
  Sex: Male
  Weight: 93.8 kg

DRUGS (1)
  1. WARFARIN [Suspect]
     Indication: ATRIAL FIBRILLATION

REACTIONS (4)
  - CONJUNCTIVAL HAEMORRHAGE [None]
  - CONTUSION [None]
  - INTERNATIONAL NORMALISED RATIO INCREASED [None]
  - TREATMENT NONCOMPLIANCE [None]
